FAERS Safety Report 17611489 (Version 1)
Quarter: 2020Q2

REPORT INFORMATION
  Report Type: Spontaneous
  Country: OM (occurrence: OM)
  Receive Date: 20200401
  Receipt Date: 20200401
  Transmission Date: 20200713
  Serious: Yes (Other)
  Sender: FDA-Public Use
  Company Number: OM-BAUSCH-BL-2020-008965

PATIENT
  Age: 49 Year
  Sex: Male

DRUGS (1)
  1. PREDNISOLONE. [Suspect]
     Active Substance: PREDNISOLONE
     Indication: PRODUCT USED FOR UNKNOWN INDICATION
     Route: 065

REACTIONS (3)
  - Polyomavirus-associated nephropathy [Unknown]
  - Glomerular filtration rate decreased [Unknown]
  - Product use in unapproved indication [Unknown]
